FAERS Safety Report 7239303-4 (Version None)
Quarter: 2011Q1

REPORT INFORMATION
  Report Type: 
  Country: None (occurrence: None)
  Receive Date: 20110121
  Receipt Date: 20110120
  Transmission Date: 20110831
  Serious: Yes (Other)
  Sender: FDA-Public Use
  Company Number: CA-ABBOTT-10P-028-0693321-00

PATIENT
  Sex: Female
  Weight: 71.732 kg

DRUGS (7)
  1. HYDRALAZINE [Concomitant]
     Indication: HYPERTENSION
     Route: 048
  2. RASILEZ [Concomitant]
     Indication: HYPERTENSION
     Route: 048
  3. CAPTOPRIL [Concomitant]
     Indication: HYPERTENSION
     Route: 048
  4. HUMIRA [Suspect]
     Indication: CROHN'S DISEASE
     Route: 058
     Dates: start: 20100310, end: 20101115
  5. CRESTOR [Concomitant]
     Indication: BLOOD CHOLESTEROL INCREASED
     Route: 048
  6. CLONIDINE [Concomitant]
     Indication: HYPERTENSION
     Route: 048
  7. AMLODIPINE [Concomitant]
     Indication: HYPERTENSION
     Route: 048

REACTIONS (5)
  - PYREXIA [None]
  - KIDNEY INFECTION [None]
  - INCISIONAL HERNIA [None]
  - ILEOSTOMY [None]
  - HERNIA [None]
